FAERS Safety Report 9333573 (Version 1)
Quarter: 2013Q2

REPORT INFORMATION
  Report Type: Spontaneous
  Country: US (occurrence: US)
  Receive Date: 20130606
  Receipt Date: 20130606
  Transmission Date: 20140414
  Serious: No
  Sender: FDA-Public Use
  Company Number: US-AMGEN-USASP2013022556

PATIENT
  Age: 63 Year
  Sex: Male
  Weight: 102.49 kg

DRUGS (22)
  1. XGEVA [Suspect]
     Indication: PROSTATE CANCER METASTATIC
     Dosage: 120 MG, Q4WK
     Dates: start: 20120711
  2. VESICARE [Concomitant]
     Dosage: UNK UNK, QD
     Route: 048
     Dates: start: 20130411
  3. CALCIUM + VITAMIN D                /01483701/ [Concomitant]
  4. AZELASTINE HCL [Concomitant]
     Dosage: 137 MUG, UNK
     Route: 045
  5. CARVEDILOL [Concomitant]
     Dosage: 3.125 MUG, UNK
     Route: 048
  6. EXELON                             /01383201/ [Concomitant]
     Dosage: 9.5 MG, QD
  7. FUROSEMIDE [Concomitant]
     Dosage: 40 MG, UNK
  8. KLOR-CON M10 [Concomitant]
     Dosage: 10 UNK, UNK
     Route: 048
  9. SELEGILINE HCL [Concomitant]
     Dosage: 5 MG, UNK
     Route: 048
  10. PRADAXA [Concomitant]
     Dosage: 150 MG, UNK
  11. POTASSIUM CHLORIDE [Concomitant]
     Dosage: 10 UNK, UNK
     Route: 048
  12. LOSARTAN POTASSIUM [Concomitant]
     Dosage: 50 MG, UNK
     Route: 048
  13. MIRAPEX [Concomitant]
     Dosage: 3 MG, UNK
     Route: 048
  14. CRESTOR [Concomitant]
     Dosage: 10 MG, UNK
  15. CLOBETASOL PROPIONATE [Concomitant]
     Dosage: 0.05 %, UNK
  16. CARBIDOPA-LEVODOPA-B [Concomitant]
  17. ASPIRIN [Concomitant]
  18. MULTIVITAMIN                       /00097801/ [Concomitant]
     Dosage: UNK UNK, QD
  19. VITAMIN B-12 [Concomitant]
     Dosage: 1000 MUG, UNK
  20. VITAMIN B COMPLEX [Concomitant]
     Dosage: UNK UNK, QD
  21. NEURONTIN [Concomitant]
     Dosage: 300 MG, QHS
  22. PEPCID                             /00706001/ [Concomitant]
     Dosage: 20 MG, BID

REACTIONS (1)
  - Fatigue [Recovering/Resolving]
